FAERS Safety Report 21213429 (Version 1)
Quarter: 2022Q3

REPORT INFORMATION
  Report Type: Spontaneous
  Country: US (occurrence: US)
  Receive Date: 20220815
  Receipt Date: 20220815
  Transmission Date: 20221027
  Serious: No
  Sender: FDA-Public Use
  Company Number: US-BRISTOL-MYERS SQUIBB COMPANY-2022-089796

PATIENT
  Age: 86 Year
  Sex: Female
  Weight: 55.34 kg

DRUGS (1)
  1. REVLIMID [Suspect]
     Active Substance: LENALIDOMIDE
     Indication: Monoclonal antibody chemoimmunoconjugate therapy
     Dosage: QD7ON7OFF
     Route: 048

REACTIONS (4)
  - Blister [Unknown]
  - Visual impairment [Unknown]
  - Peripheral swelling [Unknown]
  - Intentional product use issue [Unknown]
